FAERS Safety Report 5247619-6 (Version None)
Quarter: 2007Q1

REPORT INFORMATION
  Report Type: 
  Country: None (occurrence: None)
  Receive Date: 20070227
  Receipt Date: 20070219
  Transmission Date: 20070707
  Serious: Yes (Death, Hospitalization)
  Sender: FDA-Public Use
  Company Number: US-NOVOPROD-248986

PATIENT
  Sex: Female
  Weight: 79.365 kg

DRUGS (9)
  1. ACTIVELLA [Suspect]
     Indication: MENOPAUSAL SYMPTOMS
     Dosage: UNKNOWN
     Dates: start: 20020220, end: 20021201
  2. PREMARIN [Suspect]
     Indication: MENOPAUSAL SYMPTOMS
     Dosage: .625 MG, UNK
     Dates: start: 19940801, end: 19951201
  3. PREMPRO [Suspect]
     Indication: MENOPAUSAL SYMPTOMS
     Dosage: UNKNOWN
     Dates: start: 19951201, end: 19960101
  4. PREMPRO [Suspect]
     Dosage: UNKNOWN
     Dates: start: 19980201, end: 20010301
  5. PREMPHASE 14/14 [Suspect]
     Indication: MENOPAUSAL SYMPTOMS
     Dosage: UNKNOWN
     Dates: start: 19970101, end: 19980101
  6. PROVERA [Suspect]
     Indication: MENOPAUSAL SYMPTOMS
     Dosage: 10 MG, UNK
     Dates: start: 19940801, end: 19951201
  7. MEDROXYPROGESTERONE [Suspect]
     Indication: MENOPAUSAL SYMPTOMS
     Dosage: UNKNOWN
  8. EVISTA [Concomitant]
     Indication: MENOPAUSAL SYMPTOMS
     Dosage: UNK, UNK
     Dates: start: 20010301, end: 20010401
  9. VITAMINS NOS [Concomitant]

REACTIONS (1)
  - BREAST CANCER [None]
